FAERS Safety Report 5860450-3 (Version None)
Quarter: 2008Q3

REPORT INFORMATION
  Report Type: 
  Country: None (occurrence: None)
  Receive Date: 20080827
  Receipt Date: 20080122
  Transmission Date: 20090109
  Serious: No
  Sender: FDA-Public Use
  Company Number: US-ABBOTT-07P-163-0417981-00

PATIENT
  Sex: Male
  Weight: 70.37 kg

DRUGS (7)
  1. NIASPAN [Suspect]
     Indication: HIGH DENSITY LIPOPROTEIN DECREASED
     Dosage: WHITE
     Route: 048
     Dates: start: 20000101
  2. NIASPAN [Suspect]
     Dosage: WHITE
     Route: 048
     Dates: end: 20070701
  3. NIASPAN [Suspect]
     Dosage: ORANGE TABLETS
     Route: 048
     Dates: start: 20070701
  4. ACETYLSALICYLIC ACID SRT [Concomitant]
     Indication: DRUG USE FOR UNKNOWN INDICATION
     Route: 048
  5. AMLODIPINE [Concomitant]
     Indication: DRUG USE FOR UNKNOWN INDICATION
     Route: 048
  6. FOLIC ACID [Concomitant]
     Indication: BLOOD HOMOCYSTEINE INCREASED
     Route: 048
  7. DUTASTERIDE [Concomitant]
     Indication: DRUG USE FOR UNKNOWN INDICATION
     Route: 048

REACTIONS (4)
  - FLUSHING [None]
  - MEDICATION RESIDUE [None]
  - PARAESTHESIA [None]
  - PRURITUS [None]
